FAERS Safety Report 6568882-5 (Version None)
Quarter: 2010Q1

REPORT INFORMATION
  Report Type: 
  Country: None (occurrence: None)
  Receive Date: 20100201
  Receipt Date: 20100201
  Transmission Date: 20100710
  Serious: Yes (Hospitalization)
  Sender: FDA-Public Use
  Company Number: None

PATIENT
  Age: 50 Year
  Sex: Female
  Weight: 53.9 kg

DRUGS (3)
  1. PEG ASPARAGINASE [Suspect]
     Indication: ACUTE LYMPHOCYTIC LEUKAEMIA
     Dosage: PEG ASPARAGINASE 3000 INT UNITS ONCE IV
     Route: 042
     Dates: start: 20091103, end: 20091107
  2. PREDNISONE [Suspect]
     Indication: GRAFT VERSUS HOST DISEASE
     Dosage: PRED 10 MG DAILY ORAL
     Route: 048
  3. DEXAMETHASONE [Suspect]
     Indication: ACUTE LYMPHOCYTIC LEUKAEMIA
     Dosage: DEX 16MG DAILY X 5 ORAL (11/3-11/7)
     Route: 048
     Dates: start: 20091103, end: 20091107

REACTIONS (3)
  - ASTHENIA [None]
  - HYPERGLYCAEMIA [None]
  - PRESYNCOPE [None]
